FAERS Safety Report 9800655 (Version 2)
Quarter: 2014Q1

REPORT INFORMATION
  Report Type: Spontaneous
  Country: US (occurrence: US)
  Receive Date: 20140107
  Receipt Date: 20140214
  Transmission Date: 20141002
  Serious: No
  Sender: FDA-Public Use
  Company Number: US-B.I. PHARMACEUTICALS,INC./RIDGEFIELD-2013-BI-44151BP

PATIENT
  Age: 61 Year
  Sex: Male
  Weight: 52 kg

DRUGS (7)
  1. SPIRIVA [Suspect]
     Indication: CHRONIC OBSTRUCTIVE PULMONARY DISEASE
     Dosage: 18 MCG
     Route: 055
     Dates: start: 201304, end: 20131223
  2. QVAR [Concomitant]
     Indication: CHRONIC OBSTRUCTIVE PULMONARY DISEASE
     Dosage: DOSE PER APPLICATION: 80 MCG/ACTUATION; DAILY DOSE: 2 PUFF, 2 TIMES EVERYDAY
     Route: 055
     Dates: end: 20131216
  3. PROVENTIL [Concomitant]
     Indication: CHRONIC OBSTRUCTIVE PULMONARY DISEASE
     Dosage: DOSE PER APPLICATION: 90MCG/ACTUATION; DAILY DOSE: 2 PUFF EVERY 4-6 HOURS AS NEEDED
     Route: 055
  4. ANTIPYRINE-BENZOCAINE [Concomitant]
     Dosage: DOSE PER APPLICATION: ANTIPYRINE 5.4%- BENZOCAINE  1.4% (ENOUGH DROPS TO FILL EAR CANAL); ROUTE: OTI
  5. ADVAIR DISKUS [Concomitant]
     Dosage: FORMULATION: POWDER FOR INHALATION; DOSE PER APPLICATION: 250MCG-50MCG/DOSE; DAILY DOSE: 500MCG-100M
     Route: 055
  6. FLUTICASONE [Concomitant]
     Dosage: FORMULATION: NASAL SPRAY, SUSPENSION; DOSE PER APPLICATION: 50MCG/ACTUATION; DAILY DOSE: 1-2 SPRAY I
     Route: 045
  7. ALBUTEROL SULFATE [Concomitant]
     Dosage: DOSE PER APPLICATION: 2.5 MG/ 3ML (0.083%); DAILY DOSE: INHALE 3ML, 3 TIMES EVERYDAY
     Route: 055

REACTIONS (2)
  - Skin discolouration [Recovered/Resolved]
  - Dysuria [Recovered/Resolved]
